FAERS Safety Report 4911768-X (Version None)
Quarter: 2006Q1

REPORT INFORMATION
  Report Type: 
  Country: None (occurrence: None)
  Receive Date: 20060213
  Receipt Date: 20060213
  Transmission Date: 20060701
  Serious: Yes (Hospitalization)
  Sender: FDA-Public Use
  Company Number: None

PATIENT
  Age: 64 Year
  Sex: Male
  Weight: 72.5755 kg

DRUGS (1)
  1. SOTOLOL 120 MG [Suspect]
     Indication: ATRIAL FIBRILLATION
     Dosage: 120MG  BID  PO
     Route: 048
     Dates: start: 20060126, end: 20060207

REACTIONS (4)
  - BRADYCARDIA [None]
  - NAUSEA [None]
  - NOCTURNAL DYSPNOEA [None]
  - WEIGHT INCREASED [None]
